FAERS Safety Report 9505743 (Version 1)
Quarter: 2013Q1

REPORT INFORMATION
  Report Type: Spontaneous
  Country: US (occurrence: None)
  Receive Date: 20130225
  Receipt Date: 20130225
  Transmission Date: 20140127
  Serious: No
  Sender: FDA-Public Use
  Company Number: 367330

PATIENT
  Sex: Female

DRUGS (1)
  1. VICTOZA (IIRAGLUTIDE) SOLUTION FOR INJECTION, 6MG/ML [Suspect]
     Indication: PRODUCT USED FOR UNKNOWN INDICATION
     Route: 058
     Dates: start: 20120726

REACTIONS (2)
  - Obsessive-compulsive disorder [None]
  - Decreased appetite [None]
